FAERS Safety Report 21798905 (Version 2)
Quarter: 2023Q1

REPORT INFORMATION
  Report Type: Spontaneous
  Country: BR (occurrence: BR)
  Receive Date: 20221230
  Receipt Date: 20230110
  Transmission Date: 20230417
  Serious: Yes (Death, Hospitalization, Other)
  Sender: FDA-Public Use
  Company Number: BR-BRISTOL-MYERS SQUIBB COMPANY-2022-160147

PATIENT
  Age: 90 Year
  Sex: Female
  Weight: 55 kg

DRUGS (3)
  1. REVLIMID [Suspect]
     Active Substance: LENALIDOMIDE
     Indication: Plasma cell myeloma
     Dosage: DOSE : 25MG;     FREQ : 1 CAPSULE A DAY FOR 21 DAYS
     Route: 048
     Dates: start: 20220816
  2. NINLARO [Concomitant]
     Active Substance: IXAZOMIB CITRATE
     Indication: Plasma cell myeloma
     Dosage: TOOK 1 TABLET ON DAY 1, DAY 8 AND DAY 15
  3. DEXAMETHASONE [Concomitant]
     Active Substance: DEXAMETHASONE
     Indication: Plasma cell myeloma
     Dosage: 4 PILLS A DAY, EQUIVALENT TO 40MG, TAKEN ON DAY 1, DAY 8 AND DAY 15.

REACTIONS (4)
  - Urinary tract infection [Fatal]
  - Dehydration [Fatal]
  - Respiratory disorder [Fatal]
  - Plasma cell myeloma [Unknown]

NARRATIVE: CASE EVENT DATE: 20220901
